FAERS Safety Report 17419431 (Version 1)
Quarter: 2020Q1

REPORT INFORMATION
  Report Type: Report from Study
  Country: US (occurrence: US)
  Receive Date: 20200214
  Receipt Date: 20200214
  Transmission Date: 20200409
  Serious: Yes (Hospitalization, Other)
  Sender: FDA-Public Use
  Company Number: US-ASTRAZENECA-2020SE20066

PATIENT
  Age: 47 Year
  Sex: Male
  Weight: 92.5 kg

DRUGS (4)
  1. CRESTOR [Suspect]
     Active Substance: ROSUVASTATIN CALCIUM
     Indication: MYOCARDIAL INFARCTION
     Dosage: BRANDED
     Route: 048
     Dates: start: 2000
  2. CRESTOR [Suspect]
     Active Substance: ROSUVASTATIN CALCIUM
     Indication: STENT PLACEMENT
     Dosage: BRANDED
     Route: 048
     Dates: start: 2000
  3. CRESTOR [Suspect]
     Active Substance: ROSUVASTATIN CALCIUM
     Indication: MYOCARDIAL INFARCTION
     Dosage: GENERIC, DOSE UNKNOWN
     Route: 048
  4. CRESTOR [Suspect]
     Active Substance: ROSUVASTATIN CALCIUM
     Indication: STENT PLACEMENT
     Dosage: GENERIC, DOSE UNKNOWN
     Route: 048

REACTIONS (6)
  - Blood glucose increased [Not Recovered/Not Resolved]
  - Swelling [Unknown]
  - Swelling face [Unknown]
  - Diabetes mellitus [Not Recovered/Not Resolved]
  - Loss of consciousness [Unknown]
  - Chest pain [Unknown]

NARRATIVE: CASE EVENT DATE: 2000
